FAERS Safety Report 15457638 (Version 1)
Quarter: 2018Q4

REPORT INFORMATION
  Report Type: Spontaneous
  Country: DE (occurrence: DE)
  Receive Date: 20181003
  Receipt Date: 20181003
  Transmission Date: 20190204
  Serious: Yes (Other)
  Sender: FDA-Public Use
  Company Number: DE-ROCHE-215490

PATIENT
  Age: 9 Year
  Sex: Female
  Weight: 25.5 kg

DRUGS (4)
  1. FORTECORTIN [Concomitant]
     Active Substance: DEXAMETHASONE
     Indication: ENCEPHALITIS
     Route: 042
  2. PARACETAMOL [Concomitant]
     Active Substance: ACETAMINOPHEN
     Route: 065
  3. ROCEPHIN [Suspect]
     Active Substance: CEFTRIAXONE SODIUM
     Route: 041
     Dates: start: 19990219, end: 19990222
  4. ROCEPHIN [Suspect]
     Active Substance: CEFTRIAXONE SODIUM
     Indication: ENCEPHALITIS
     Route: 041
     Dates: start: 19990223, end: 19990304

REACTIONS (6)
  - Renal hypertrophy [Unknown]
  - Cerebrospinal fluid leakage [Unknown]
  - Vomiting [Unknown]
  - Calculus bladder [Unknown]
  - Nephrolithiasis [Recovering/Resolving]
  - Abdominal pain [Unknown]

NARRATIVE: CASE EVENT DATE: 19990304
